FAERS Safety Report 23914437 (Version 2)
Quarter: 2024Q2

REPORT INFORMATION
  Report Type: Spontaneous
  Country: ES (occurrence: ES)
  Receive Date: 20240529
  Receipt Date: 20240607
  Transmission Date: 20240716
  Serious: Yes (Death)
  Sender: FDA-Public Use
  Company Number: ES-SUN PHARMACEUTICAL INDUSTRIES LTD-2024RR-448083

PATIENT
  Age: 55 Year
  Sex: Male

DRUGS (5)
  1. TILDRAKIZUMAB [Suspect]
     Active Substance: TILDRAKIZUMAB
     Indication: Psoriasis
     Dosage: 200 MILLIGRAM
     Route: 058
     Dates: start: 20240322
  2. PROPRANOLOL HYDROCHLORIDE [Concomitant]
     Active Substance: PROPRANOLOL HYDROCHLORIDE
     Indication: Arrhythmia
     Dosage: 10 MILLIGRAM
     Route: 065
  3. ENSTILAR [Concomitant]
     Active Substance: BETAMETHASONE DIPROPIONATE\CALCIPOTRIENE HYDRATE
     Indication: Psoriasis
     Dosage: 15 APPLICATIONS EVERY 24 HOURS
     Route: 003
     Dates: start: 20220316
  4. OMEPRAZOLE [Concomitant]
     Active Substance: DONEPEZIL HYDROCHLORIDE\OMEPRAZOLE\OMEPRAZOLE MAGNESIUM
     Indication: Oesophagitis
     Dosage: 20 MILLIGRAM, BID
     Route: 048
     Dates: start: 20230703
  5. METFORMIN CINFA [Concomitant]
     Indication: Type 2 diabetes mellitus
     Dosage: 850 MILLIGRAM (425 BISD)
     Route: 048
     Dates: start: 20210315

REACTIONS (2)
  - Haemorrhage intracranial [Fatal]
  - Intracranial haematoma [Fatal]

NARRATIVE: CASE EVENT DATE: 20240327
